FAERS Safety Report 8420319-7 (Version None)
Quarter: 2012Q2

REPORT INFORMATION
  Report Type: 
  Country: None (occurrence: None)
  Receive Date: 20120607
  Receipt Date: 20120525
  Transmission Date: 20120825
  Serious: Yes (Life-Threatening, Hospitalization, Other)
  Sender: FDA-Public Use
  Company Number: US-MYLANLABS-2009AC000111

PATIENT
  Age: 78 Year
  Sex: Female
  Weight: 82.56 kg

DRUGS (87)
  1. DIGOXIN [Suspect]
     Indication: CARDIAC FAILURE CONGESTIVE
     Route: 048
     Dates: start: 20041004, end: 20080626
  2. MUPIROCIN [Concomitant]
  3. REQUIP [Concomitant]
  4. ZOCOR [Concomitant]
  5. FERROUS SULFATE TAB [Concomitant]
  6. SULFAMETHOXAZOLE [Concomitant]
  7. POTASSIUM [Concomitant]
  8. COSOPT [Concomitant]
  9. ESTRACE [Concomitant]
  10. BENZONATATE [Concomitant]
  11. LORAZEPAM [Concomitant]
  12. VITAMIN D [Concomitant]
  13. COUMADIN [Concomitant]
  14. IMIPRAMINE [Concomitant]
  15. SYMAX-SR [Concomitant]
     Dosage: X 5 DAYS
     Route: 048
  16. IBUPROFEN [Concomitant]
     Indication: CHEST PAIN
  17. COREG [Concomitant]
  18. FLUCONAZOLE [Concomitant]
  19. DOXYCYCLINE [Concomitant]
  20. CYCLOBENZAPRINE [Concomitant]
  21. AMIODARONE HCL [Concomitant]
  22. GABAPENTIN [Concomitant]
  23. LEVAQUIN [Concomitant]
  24. COSOPT [Concomitant]
     Route: 047
  25. DORZOLAMIDE HYDROCHLORIDE AND TIMOLOL MALEATE [Concomitant]
  26. CEPHALEXIN [Concomitant]
  27. QUININE SULFATE [Concomitant]
  28. BIDIL [Concomitant]
     Dosage: 37.5/20MG - 1/2 TABLET
  29. PYRELLE [Concomitant]
  30. LYRICA [Concomitant]
  31. PROTONIX [Concomitant]
  32. ZYRTEC [Concomitant]
  33. METRONIDAZOLE [Concomitant]
  34. CIPROFLOXACIN HCL [Concomitant]
  35. PHENAZOPYRIDINE HCL TAB [Concomitant]
  36. LACTULOSE [Concomitant]
     Indication: CONSTIPATION
  37. CIMETIDINE [Concomitant]
  38. BIMATOPROST [Concomitant]
     Route: 047
  39. HYDRALAZINE HCL W/ISOSORBIDE DINITRATE [Concomitant]
  40. PNEUMOCOCCAL VACCINE [Concomitant]
  41. CLARITHROMYCIN [Concomitant]
  42. METHYLPREDNISOLONE [Concomitant]
  43. HYDROCODONE [Concomitant]
  44. LEVAQUIN [Concomitant]
  45. COZAAR [Concomitant]
  46. ALPRAZOLAM [Concomitant]
  47. NORTRIPTYLINE HCL [Concomitant]
  48. TRAMADOL HCL [Concomitant]
  49. ZITHROMAX [Concomitant]
  50. DIOVAN [Concomitant]
  51. PROPOXYPHENE HCL AND ACETAMINOPHEN [Concomitant]
  52. LEVSIN PB [Concomitant]
     Indication: ABDOMINAL PAIN
     Route: 060
  53. FLEET /00766901/ [Concomitant]
  54. VERSED [Concomitant]
     Route: 042
  55. ALBUTEROL [Concomitant]
     Indication: DYSPNOEA
     Dosage: 2 PUFFS Q 4 HOURS AS NEEDED
     Route: 055
  56. MIRALAX /00754501/ [Concomitant]
     Dosage: 1 TABLESPOON IN 8 OUNCES OF WATER DAILY
  57. CARDIZEM [Concomitant]
     Route: 042
  58. ATROPINE [Concomitant]
  59. LUMIGAN [Concomitant]
     Route: 047
  60. SIMETHICONE [Concomitant]
  61. TESSALON [Concomitant]
  62. DIPRIVAN [Concomitant]
     Dosage: 39 UNITS
     Route: 042
  63. FERGON [Concomitant]
  64. BIAXIN XL [Concomitant]
     Dosage: X14 DAYS
  65. SULFAMETHOXAZOLE [Concomitant]
  66. NITROFURANTOIN [Concomitant]
  67. MECLIZINE [Concomitant]
  68. HYDROCODONE BITARTRATE + ACETAMINOPHEN [Concomitant]
  69. OXYCODONE AND ACETAMINOPHEN [Concomitant]
  70. DEMEROL [Concomitant]
  71. ASPIRIN [Concomitant]
  72. NEXIUM [Concomitant]
  73. RIFAMPIN [Concomitant]
  74. METOPROLOL [Concomitant]
  75. FEXOFENADINE [Concomitant]
  76. GLYCOLAX [Concomitant]
  77. FUROSEMIDE [Concomitant]
  78. NITROFURANTOIN MONOHYDRATE/MACROCRYSTALS [Concomitant]
  79. PERCOCET [Concomitant]
     Indication: PAIN
     Dosage: Q4-6 HRS PRN
  80. LUNESTA [Concomitant]
  81. DIAZEPAM [Concomitant]
  82. OXYCODONE HCL [Concomitant]
  83. SERTRALINE HYDROCHLORIDE [Concomitant]
  84. DIFLUCAN [Concomitant]
  85. HYDROCHLOROTHIAZDE TAB [Concomitant]
  86. ACETAMINOPHEN [Concomitant]
     Indication: PYREXIA
  87. DOPAMINE HCL [Concomitant]

REACTIONS (152)
  - ILL-DEFINED DISORDER [None]
  - THYROID CYST [None]
  - NAUSEA [None]
  - BRADYCARDIA [None]
  - ANAEMIA [None]
  - ARTHRALGIA [None]
  - CHEST PAIN [None]
  - CONDITION AGGRAVATED [None]
  - CYANOSIS [None]
  - DYSPHAGIA [None]
  - EMOTIONAL DISTRESS [None]
  - GAIT DISTURBANCE [None]
  - HEART RATE ABNORMAL [None]
  - JOINT RANGE OF MOTION DECREASED [None]
  - DILATATION ATRIAL [None]
  - OSTEOARTHRITIS [None]
  - PRURITUS [None]
  - PUPILLARY DISORDER [None]
  - SINUS BRADYCARDIA [None]
  - WEIGHT DECREASED [None]
  - CARDIAC FAILURE CONGESTIVE [None]
  - SYNCOPE [None]
  - CARDIAC FAILURE ACUTE [None]
  - RENAL FAILURE ACUTE [None]
  - HYPOTENSION [None]
  - MYOCARDIAL INFARCTION [None]
  - ABSCESS [None]
  - CARDIOMEGALY [None]
  - ERYTHEMA [None]
  - INTERVERTEBRAL DISC PROTRUSION [None]
  - LEFT VENTRICULAR HYPERTROPHY [None]
  - LYMPHADENOPATHY [None]
  - MOBILITY DECREASED [None]
  - PALPITATIONS [None]
  - TACHYCARDIA [None]
  - VISUAL BRIGHTNESS [None]
  - INJURY [None]
  - ANGINA PECTORIS [None]
  - SEPSIS [None]
  - HYPOKINESIA [None]
  - BONE DISORDER [None]
  - BREATH SOUNDS ABNORMAL [None]
  - CERVICAL SPINAL STENOSIS [None]
  - DIVERTICULUM [None]
  - FEELING ABNORMAL [None]
  - HIATUS HERNIA [None]
  - IMPLANTABLE DEFIBRILLATOR INSERTION [None]
  - INTERVERTEBRAL DISC DEGENERATION [None]
  - JOINT FLUID DRAINAGE [None]
  - JOINT WARMTH [None]
  - PERIPHERAL PULSE DECREASED [None]
  - PULMONARY VASCULAR DISORDER [None]
  - RALES [None]
  - SENSATION OF PRESSURE [None]
  - SINUS ARRHYTHMIA [None]
  - SUPRAVENTRICULAR TACHYCARDIA [None]
  - SYSTOLIC DYSFUNCTION [None]
  - UPPER-AIRWAY COUGH SYNDROME [None]
  - URINARY INCONTINENCE [None]
  - VISION BLURRED [None]
  - HYPERTENSION [None]
  - DYSPNOEA [None]
  - HYPERHIDROSIS [None]
  - PULMONARY HYPERTENSION [None]
  - ANXIETY [None]
  - ASTHENIA [None]
  - LABORATORY TEST ABNORMAL [None]
  - BRAIN SCAN ABNORMAL [None]
  - CELLULITIS [None]
  - DEPRESSION [None]
  - EJECTION FRACTION DECREASED [None]
  - HAEMATURIA [None]
  - OROPHARYNGEAL PAIN [None]
  - PHARYNGEAL ERYTHEMA [None]
  - POLYURIA [None]
  - RASH [None]
  - SPINAL OSTEOARTHRITIS [None]
  - VENOUS PRESSURE JUGULAR INCREASED [None]
  - GASTROOESOPHAGEAL REFLUX DISEASE [None]
  - CARDIOMYOPATHY [None]
  - DISEASE PROGRESSION [None]
  - DIZZINESS [None]
  - LOSS OF CONSCIOUSNESS [None]
  - ARRHYTHMIA [None]
  - ATRIAL FLUTTER [None]
  - CARDIAC VALVE DISEASE [None]
  - CARDIOVERSION [None]
  - CHILLS [None]
  - DILATATION VENTRICULAR [None]
  - DRUG INEFFECTIVE [None]
  - DRUG INTOLERANCE [None]
  - FLUID INTAKE REDUCED [None]
  - HYPERCHOLESTEROLAEMIA [None]
  - PNEUMONIA [None]
  - RENAL CYST [None]
  - RESTLESS LEGS SYNDROME [None]
  - SCIATICA [None]
  - VENTRICULAR EXTRASYSTOLES [None]
  - PAIN [None]
  - ECONOMIC PROBLEM [None]
  - CHEST DISCOMFORT [None]
  - ATRIOVENTRICULAR BLOCK COMPLETE [None]
  - CORONARY ARTERY DISEASE [None]
  - MYOCARDIAL ISCHAEMIA [None]
  - ABDOMINAL PAIN UPPER [None]
  - BACK PAIN [None]
  - CARDIAC MURMUR [None]
  - CHOKING SENSATION [None]
  - EAR PAIN [None]
  - FACIAL WASTING [None]
  - FEELING HOT [None]
  - INSOMNIA [None]
  - NERVOUSNESS [None]
  - PAIN IN EXTREMITY [None]
  - PRODUCTIVE COUGH [None]
  - PUPILS UNEQUAL [None]
  - VISUAL IMPAIRMENT [None]
  - PRESYNCOPE [None]
  - TOXICITY TO VARIOUS AGENTS [None]
  - BACTERAEMIA [None]
  - BLOOD PRESSURE DECREASED [None]
  - BODY TEMPERATURE DECREASED [None]
  - BRONCHITIS [None]
  - CARDIAC PACEMAKER INSERTION [None]
  - CONFUSIONAL STATE [None]
  - COUGH [None]
  - DEHYDRATION [None]
  - DENTURE WEARER [None]
  - DYSARTHRIA [None]
  - ELECTROCARDIOGRAM ABNORMAL [None]
  - EXOSTOSIS [None]
  - HYPERPLASIA [None]
  - LUMBAR SPINAL STENOSIS [None]
  - OEDEMA [None]
  - SYNOVIAL CYST [None]
  - ATRIAL FIBRILLATION [None]
  - AMNESIA [None]
  - BUNDLE BRANCH BLOCK RIGHT [None]
  - DECREASED APPETITE [None]
  - FLUID OVERLOAD [None]
  - GASTRITIS [None]
  - INFLAMMATION [None]
  - INFLUENZA LIKE ILLNESS [None]
  - NASAL SEPTUM DISORDER [None]
  - SCOLIOSIS [None]
  - SINUSITIS [None]
  - SLEEP DISORDER [None]
  - SPEECH DISORDER [None]
  - SPUTUM DISCOLOURED [None]
  - TENDERNESS [None]
  - TREATMENT FAILURE [None]
  - URINARY TRACT INFECTION [None]
